FAERS Safety Report 5771998-4 (Version None)
Quarter: 2008Q2

REPORT INFORMATION
  Report Type: 
  Country: None (occurrence: None)
  Receive Date: 20080611
  Receipt Date: 20080526
  Transmission Date: 20081010
  Serious: Yes (Other)
  Sender: FDA-Public Use
  Company Number: 20520080137

PATIENT
  Age: 56 Year
  Sex: Female

DRUGS (2)
  1. LANREOTIDE AUTOGEL (LANREOTIDE ACETATE) [Suspect]
     Indication: ACROMEGALY
     Dosage: (120 MG, ONCE EVERY 28 DAYS) SUBCUTANEOUS
     Route: 058
     Dates: start: 20070705, end: 20080121
  2. SOMAVERT [Suspect]
     Indication: ACROMEGALY
     Dosage: 40 MG (ONCE WEEKLY) SUBCUTANEOUS
     Route: 058
     Dates: start: 20071029, end: 20080128

REACTIONS (2)
  - DISEASE RECURRENCE [None]
  - IDIOPATHIC THROMBOCYTOPENIC PURPURA [None]
